FAERS Safety Report 18022622 (Version 1)
Quarter: 2020Q3

REPORT INFORMATION
  Report Type: Spontaneous
  Country: CN (occurrence: CN)
  Receive Date: 20200715
  Receipt Date: 20200715
  Transmission Date: 20201103
  Serious: Yes (Other)
  Sender: FDA-Public Use
  Company Number: CN-ROCHE-2640301

PATIENT
  Age: 67 Year
  Sex: Male
  Weight: 64 kg

DRUGS (2)
  1. OXALIPLATIN. [Concomitant]
     Active Substance: OXALIPLATIN
     Indication: GASTRIC CANCER
     Dosage: DAY1
     Route: 042
     Dates: start: 20200423
  2. XELODA [Suspect]
     Active Substance: CAPECITABINE
     Indication: GASTRIC CANCER
     Route: 048
     Dates: start: 20200423

REACTIONS (12)
  - Toxic shock syndrome [Unknown]
  - Enteritis infectious [Unknown]
  - Granulocyte count decreased [Unknown]
  - Drug eruption [Unknown]
  - Drug-induced liver injury [Unknown]
  - Hyponatraemia [Unknown]
  - Ileus [Unknown]
  - Pneumonia [Unknown]
  - Hypoproteinaemia [Unknown]
  - Palmar-plantar erythrodysaesthesia syndrome [Unknown]
  - Haematotoxicity [Unknown]
  - Myelosuppression [Unknown]
